FAERS Safety Report 24221829 (Version 1)
Quarter: 2024Q3

REPORT INFORMATION
  Report Type: Spontaneous
  Country: AU (occurrence: None)
  Receive Date: 20240819
  Receipt Date: 20240819
  Transmission Date: 20241017
  Serious: Yes (Other)
  Sender: INFORLIFE
  Company Number: AU-INFO-20240248

PATIENT
  Age: 64 Year
  Sex: Male

DRUGS (14)
  1. ACETAMINOPHEN [Interacting]
     Active Substance: ACETAMINOPHEN
     Dosage: AS NECESSARY
  2. FLUCLOXACILLIN [Interacting]
     Active Substance: FLUCLOXACILLIN
     Indication: Staphylococcal infection
     Route: 040
  3. LEVETIRACETAM [Concomitant]
     Active Substance: LEVETIRACETAM
  4. PHENYTOIN [Concomitant]
     Active Substance: PHENYTOIN
  5. METFORMIN [Concomitant]
     Active Substance: METFORMIN HYDROCHLORIDE
  6. DULAGLUTIDE [Concomitant]
     Active Substance: DULAGLUTIDE
  7. INSULIN GLARGINE [Concomitant]
     Active Substance: INSULIN GLARGINE
  8. GLICLAZIDE [Concomitant]
     Active Substance: GLICLAZIDE
  9. THIAMINE [Concomitant]
     Active Substance: THIAMINE
  10. PRAZOSIN [Concomitant]
     Active Substance: PRAZOSIN
  11. MIRTAZAPINE [Concomitant]
     Active Substance: MIRTAZAPINE
  12. PANTOPRAZOLE [Concomitant]
     Active Substance: PANTOPRAZOLE
  13. CHOLECALCIFEROL [Concomitant]
     Active Substance: CHOLECALCIFEROL
  14. FEXOFENADINE [Concomitant]
     Active Substance: FEXOFENADINE HYDROCHLORIDE

REACTIONS (2)
  - Pyroglutamic acidosis [Recovered/Resolved]
  - Drug interaction [Recovered/Resolved]
